FAERS Safety Report 5335613-6 (Version None)
Quarter: 2007Q2

REPORT INFORMATION
  Report Type: 
  Country: None (occurrence: None)
  Receive Date: 20070522
  Receipt Date: 20070424
  Transmission Date: 20071010
  Serious: Yes (Death)
  Sender: FDA-Public Use
  Company Number: JPI-P-001118

PATIENT
  Age: 38 Year
  Sex: Female
  Weight: 72.1219 kg

DRUGS (5)
  1. XYREM [Suspect]
     Indication: INSOMNIA
     Dosage: 9 GM (4.5 GM, 2 IN 1 D), ORAL
     Route: 048
     Dates: start: 20070301, end: 20070422
  2. KEPPRA [Concomitant]
  3. BUSPAR [Concomitant]
  4. ALEVE [Concomitant]
  5. XANAX [Concomitant]

REACTIONS (1)
  - FAMILY STRESS [None]
